FAERS Safety Report 6779920-9 (Version None)
Quarter: 2010Q2

REPORT INFORMATION
  Report Type: 
  Country: None (occurrence: None)
  Receive Date: 20100618
  Receipt Date: 20100615
  Transmission Date: 20101027
  Serious: Yes (Hospitalization, Disabling, Other)
  Sender: FDA-Public Use
  Company Number: US-MERCK-1001USA03803

PATIENT
  Age: 59 Year
  Sex: Female
  Weight: 73 kg

DRUGS (7)
  1. FOSAMAX [Suspect]
     Indication: OSTEOPOROSIS
     Route: 048
     Dates: start: 19950101, end: 20030101
  2. FOSAMAX [Suspect]
     Route: 048
     Dates: start: 20030113, end: 20070201
  3. FOSAMAX [Suspect]
     Route: 048
     Dates: start: 20070101, end: 20070101
  4. BONIVA [Suspect]
     Indication: OSTEOPOROSIS
     Route: 065
     Dates: start: 20070201, end: 20070101
  5. BONIVA [Suspect]
     Route: 065
     Dates: start: 20080101
  6. FOSAMAX PLUS D [Concomitant]
     Indication: OSTEOPOROSIS
     Route: 048
     Dates: end: 20070101
  7. LIPITOR [Concomitant]
     Indication: BLOOD CHOLESTEROL INCREASED
     Route: 065

REACTIONS (59)
  - ABDOMINAL HERNIA [None]
  - ANXIETY [None]
  - ARTHRALGIA [None]
  - BARRETT'S OESOPHAGUS [None]
  - BURSITIS [None]
  - CERUMEN IMPACTION [None]
  - CHEST DISCOMFORT [None]
  - COAGULOPATHY [None]
  - CONJUNCTIVITIS [None]
  - DENTAL CARIES [None]
  - DEPRESSION [None]
  - DIVERTICULUM INTESTINAL [None]
  - DIZZINESS [None]
  - DYSPHAGIA [None]
  - EDENTULOUS [None]
  - EXCORIATION [None]
  - EXOSTOSIS [None]
  - FATIGUE [None]
  - FEELING ABNORMAL [None]
  - GASTROOESOPHAGITIS [None]
  - GINGIVAL DISORDER [None]
  - GLUCOSE TOLERANCE IMPAIRED [None]
  - HAEMORRHOIDS [None]
  - HAND FRACTURE [None]
  - HERNIA [None]
  - HIATUS HERNIA [None]
  - IMPAIRED HEALING [None]
  - INTESTINAL POLYP [None]
  - JOINT DISLOCATION [None]
  - LETHARGY [None]
  - MALAISE [None]
  - MEMORY IMPAIRMENT [None]
  - NASAL CONGESTION [None]
  - OESOPHAGEAL STENOSIS [None]
  - OESOPHAGITIS ULCERATIVE [None]
  - ORAL CAVITY FISTULA [None]
  - ORAL HERPES [None]
  - OSTEOARTHRITIS [None]
  - OSTEONECROSIS OF JAW [None]
  - PERIODONTAL DISEASE [None]
  - PHLEBITIS SUPERFICIAL [None]
  - PLANTAR FASCIITIS [None]
  - RECTAL POLYP [None]
  - REFLUX OESOPHAGITIS [None]
  - REPRODUCTIVE TRACT DISORDER [None]
  - RESPIRATORY DISTRESS [None]
  - ROSACEA [None]
  - ROTATOR CUFF SYNDROME [None]
  - SEBORRHOEIC KERATOSIS [None]
  - SINUS CONGESTION [None]
  - SKIN INFECTION [None]
  - SKIN LESION [None]
  - STOMATITIS [None]
  - STRESS [None]
  - TENDONITIS [None]
  - TINNITUS [None]
  - TOOTH ABSCESS [None]
  - TOOTH DISORDER [None]
  - URINARY TRACT INFECTION [None]
